FAERS Safety Report 20381266 (Version 1)
Quarter: 2022Q1

REPORT INFORMATION
  Report Type: Spontaneous
  Country: US (occurrence: US)
  Receive Date: 20220127
  Receipt Date: 20220127
  Transmission Date: 20220423
  Serious: Yes (Hospitalization, Other)
  Sender: FDA-Public Use
  Company Number: US-PRA-001127

PATIENT
  Age: 46 Year
  Sex: Male

DRUGS (1)
  1. METHYLPREDNISOLONE [Suspect]
     Active Substance: METHYLPREDNISOLONE
     Indication: Leukoencephalopathy
     Route: 042

REACTIONS (2)
  - Locked-in syndrome [Recovered/Resolved]
  - Product use in unapproved indication [Unknown]
